FAERS Safety Report 5751345-4 (Version None)
Quarter: 2008Q2

REPORT INFORMATION
  Report Type: 
  Country: None (occurrence: None)
  Receive Date: 20080528
  Receipt Date: 20080516
  Transmission Date: 20081010
  Serious: Yes (Hospitalization)
  Sender: FDA-Public Use
  Company Number: FR-PFIZER INC-2008043053

PATIENT
  Sex: Male

DRUGS (4)
  1. CHANTIX [Suspect]
     Route: 048
  2. BROMAZEPAM [Concomitant]
  3. LOPRAZOLAM MESILATE [Concomitant]
  4. BIPHOSPHONATE [Concomitant]

REACTIONS (1)
  - PULMONARY EMBOLISM [None]
